FAERS Safety Report 8799366 (Version 1)
Quarter: 2012Q4

REPORT INFORMATION
  Report Type: 
  Country: US (occurrence: US)
  Receive Date: 20120919
  Receipt Date: 20120919
  Transmission Date: 20130627
  Serious: Yes (Other)
  Sender: FDA-Public Use
  Company Number: US-ASTELLAS-2011US004346

PATIENT
  Age: 63 Year
  Sex: Male

DRUGS (8)
  1. PROGRAF [Suspect]
     Indication: LIVER TRANSPLANT
     Dosage: 3 mg, bid
     Route: 048
     Dates: start: 20090324
  2. PROGRAF [Suspect]
     Dosage: 0.5 mg, Unknown/D
     Route: 048
  3. CITALOPRAM [Concomitant]
     Indication: PRODUCT USED FOR UNKNOWN INDICATION
     Dosage: 10 mg, UID/QD
     Route: 048
  4. ZOLPIDEM [Concomitant]
     Indication: SLEEP DISORDER
     Dosage: 10 mg, QHS
     Route: 048
     Dates: start: 2009
  5. METOPROLOL TARTRATE [Concomitant]
     Indication: PRODUCT USED FOR UNKNOWN INDICATION
     Dosage: 12.5 mg, bid
     Route: 048
     Dates: start: 2009
  6. BACTRIM [Concomitant]
     Indication: ANTIBIOTIC THERAPY
     Dosage: 800/160 mg, 3xWeekly
     Route: 048
     Dates: start: 2009
  7. PANADOL [Concomitant]
     Indication: PRODUCT USED FOR UNKNOWN INDICATION
     Dosage: 500 mg, bid
     Route: 048
  8. FUROSEMIDE [Concomitant]
     Indication: PRODUCT USED FOR UNKNOWN INDICATION
     Dosage: 40 mg, UID/QD
     Route: 048
     Dates: start: 2009

REACTIONS (2)
  - Renal disorder [Unknown]
  - Hernia [Recovering/Resolving]
